FAERS Safety Report 10033442 (Version 1)
Quarter: 2014Q1

REPORT INFORMATION
  Report Type: Spontaneous
  Country: PK (occurrence: PK)
  Receive Date: 20140325
  Receipt Date: 20140325
  Transmission Date: 20141002
  Serious: Yes (Disabling, Other)
  Sender: FDA-Public Use
  Company Number: PK-ROCHE-1370236

PATIENT
  Age: 57 Year
  Sex: Female
  Weight: 98.11 kg

DRUGS (2)
  1. XOLAIR [Suspect]
     Indication: ASTHMA
     Route: 058
     Dates: start: 20140222
  2. XOLAIR [Suspect]
     Route: 058
     Dates: start: 20140308, end: 20140308

REACTIONS (1)
  - Pneumonia [Not Recovered/Not Resolved]
